FAERS Safety Report 20756050 (Version 2)
Quarter: 2022Q2

REPORT INFORMATION
  Report Type: Spontaneous
  Country: PL (occurrence: PL)
  Receive Date: 20220427
  Receipt Date: 20220511
  Transmission Date: 20220721
  Serious: Yes (Death, Hospitalization, Other)
  Sender: FDA-Public Use
  Company Number: PL-AMGEN-POLSP2022070719

PATIENT
  Age: 78 Year
  Sex: Male

DRUGS (7)
  1. PANITUMUMAB [Suspect]
     Active Substance: PANITUMUMAB
     Indication: Adenocarcinoma metastatic
     Dosage: UNK
     Route: 065
     Dates: start: 20200408
  2. PANITUMUMAB [Suspect]
     Active Substance: PANITUMUMAB
     Dosage: UNK, DOSES REDUCED TO 80%
     Route: 065
     Dates: start: 2020
  3. PANITUMUMAB [Suspect]
     Active Substance: PANITUMUMAB
     Dosage: UNK UNK, Q3WK
     Route: 065
     Dates: start: 2020
  4. PANITUMUMAB [Suspect]
     Active Substance: PANITUMUMAB
     Dosage: UNK UNK, Q2WK, EVERY 14 DAYS
     Route: 065
  5. LEUCOVORIN [Concomitant]
     Active Substance: LEUCOVORIN
     Indication: Adenocarcinoma metastatic
     Dosage: UNK
     Dates: start: 20200408
  6. FLUOROURACIL [Concomitant]
     Active Substance: FLUOROURACIL
     Indication: Adenocarcinoma metastatic
     Dosage: UNK
     Dates: start: 20200408
  7. OXALIPLATIN [Concomitant]
     Active Substance: OXALIPLATIN
     Indication: Adenocarcinoma metastatic
     Dosage: UNK
     Dates: start: 20200408

REACTIONS (6)
  - Death [Fatal]
  - Diarrhoea [Recovering/Resolving]
  - Pulmonary embolism [Unknown]
  - Granulocytopenia [Unknown]
  - Respiratory failure [Unknown]
  - Coronavirus infection [Unknown]

NARRATIVE: CASE EVENT DATE: 20200101
